FAERS Safety Report 5880940-7 (Version None)
Quarter: 2008Q3

REPORT INFORMATION
  Report Type: 
  Country: None (occurrence: None)
  Receive Date: 20080912
  Receipt Date: 20080829
  Transmission Date: 20090109
  Serious: Yes (Hospitalization)
  Sender: FDA-Public Use
  Company Number: BE-GENENTECH-218592

PATIENT
  Sex: Male
  Weight: 72.698 kg

DRUGS (4)
  1. BEVACIZUMAB [Suspect]
     Indication: COLON CANCER
     Dosage: 7.5 MG/M2, Q3W
     Route: 042
     Dates: start: 20050915
  2. CAPECITABINE [Suspect]
     Indication: COLON CANCER
     Dosage: 1800 MG/M2, BID
     Route: 048
     Dates: start: 20050915
  3. OXALIPLATIN [Suspect]
     Indication: COLON CANCER
     Dosage: 130 MG/M2, Q3W
     Route: 042
     Dates: start: 20050915
  4. PARACOD [Suspect]

REACTIONS (1)
  - INCISION SITE COMPLICATION [None]
